FAERS Safety Report 23452913 (Version 2)
Quarter: 2024Q1

REPORT INFORMATION
  Report Type: Spontaneous
  Country: AE (occurrence: AE)
  Receive Date: 20240129
  Receipt Date: 20240205
  Transmission Date: 20240409
  Serious: Yes (Hospitalization, Other)
  Sender: FDA-Public Use
  Company Number: AE-002147023-NVSC2024AE018369

PATIENT
  Age: 4 Year
  Sex: Male
  Weight: 15.35 kg

DRUGS (5)
  1. ZOLGENSMA [Suspect]
     Active Substance: ONASEMNOGENE ABEPARVOVEC-XIOI
     Indication: Spinal muscular atrophy
     Dosage: 85.3 ML
     Route: 042
     Dates: start: 20231221, end: 20231221
  2. NUSINERSEN [Suspect]
     Active Substance: NUSINERSEN
     Indication: Product used for unknown indication
     Dosage: UNK
     Route: 065
  3. PREDNISOLONE [Concomitant]
     Active Substance: PREDNISOLONE
     Indication: Product used for unknown indication
     Dosage: (2MG/KG/DAY)
     Route: 065
  4. PREDNISOLONE [Concomitant]
     Active Substance: PREDNISOLONE
     Dosage: 22.5 MG, QD (7.5 ML OD)
     Route: 065
  5. ESOMEPRAZOLE [Concomitant]
     Active Substance: ESOMEPRAZOLE
     Indication: Product used for unknown indication
     Dosage: UNK
     Route: 065

REACTIONS (12)
  - Renal failure [Recovering/Resolving]
  - Nephrolithiasis [Unknown]
  - Haematuria [Unknown]
  - Cough [Unknown]
  - Nasopharyngitis [Unknown]
  - Respiration abnormal [Unknown]
  - Hyperkalaemia [Unknown]
  - Hypertension [Unknown]
  - Hepatic enzyme increased [Recovering/Resolving]
  - Blood pressure increased [Unknown]
  - Feeding disorder [Unknown]
  - Vomiting [Unknown]

NARRATIVE: CASE EVENT DATE: 20231228
